FAERS Safety Report 9914081 (Version 1)
Quarter: 2014Q1

REPORT INFORMATION
  Report Type: Spontaneous
  Country: US (occurrence: US)
  Receive Date: 20140220
  Receipt Date: 20140220
  Transmission Date: 20141002
  Serious: No
  Sender: FDA-Public Use
  Company Number: US-MYLANLABS-2013S1008098

PATIENT
  Age: 53 Year
  Sex: Female
  Weight: 81.65 kg

DRUGS (6)
  1. ALPRAZOLAM TABLETS, USP [Suspect]
     Indication: ANXIETY
     Route: 048
     Dates: start: 20130326
  2. ALPRAZOLAM TABLETS, USP [Suspect]
     Indication: AGITATION
     Route: 048
     Dates: start: 20130326
  3. ESTRADIOL [Concomitant]
     Indication: HORMONE REPLACEMENT THERAPY
     Route: 048
     Dates: start: 20130325
  4. NEXIUM [Concomitant]
     Indication: DYSPEPSIA
     Route: 048
  5. FLONASE [Concomitant]
     Indication: MULTIPLE ALLERGIES
  6. TRIAMTERENE + HYDROCHLOROTHIAZIDE [Concomitant]
     Indication: FLUID RETENTION

REACTIONS (7)
  - Drug ineffective [Not Recovered/Not Resolved]
  - Anxiety [Not Recovered/Not Resolved]
  - Agitation [Not Recovered/Not Resolved]
  - Middle insomnia [Not Recovered/Not Resolved]
  - Negative thoughts [Not Recovered/Not Resolved]
  - Hyperhidrosis [Not Recovered/Not Resolved]
  - Inappropriate schedule of drug administration [Not Recovered/Not Resolved]
